FAERS Safety Report 9745512 (Version 1)
Quarter: 2013Q4

REPORT INFORMATION
  Report Type: Spontaneous
  Country: US (occurrence: US)
  Receive Date: 20131211
  Receipt Date: 20131211
  Transmission Date: 20140711
  Serious: No
  Sender: FDA-Public Use
  Company Number: US-BIOGENIDEC-2013BI091306

PATIENT
  Age: 57 Year
  Sex: Female

DRUGS (25)
  1. TECFIDERA [Suspect]
     Indication: MULTIPLE SCLEROSIS
     Route: 048
     Dates: start: 20130820
  2. TECFIDERA [Suspect]
     Indication: MULTIPLE SCLEROSIS
     Route: 048
  3. ACARBOSE [Concomitant]
  4. AMANTADINE [Concomitant]
  5. CLONIDINE [Concomitant]
  6. DILTIAZEM [Concomitant]
  7. ESOMEPRAZOLE [Concomitant]
  8. GLIMEPIRIDE [Concomitant]
  9. KLOR-CON POWDER [Concomitant]
  10. LANTUS INJ SOLOSTAR [Concomitant]
  11. LASIX [Concomitant]
  12. LISODERM DIS [Concomitant]
  13. LIPITOR [Concomitant]
  14. LISINOPRIL [Concomitant]
  15. LYRICA [Concomitant]
  16. NASONEX [Concomitant]
  17. PROAIR HFA [Concomitant]
  18. SIMETHICONE [Concomitant]
  19. TRAMADOL HCL [Concomitant]
  20. TRIAMCINOLONE CREAM [Concomitant]
  21. TRILEPTAL [Concomitant]
  22. TYLENOL [Concomitant]
  23. VITAMIN D [Concomitant]
  24. ZYRTEC [Concomitant]
  25. NEXIUM [Concomitant]

REACTIONS (6)
  - Flatulence [Not Recovered/Not Resolved]
  - Migraine [Unknown]
  - Flushing [Recovered/Resolved]
  - Dyspepsia [Not Recovered/Not Resolved]
  - Vomiting [Not Recovered/Not Resolved]
  - Nausea [Not Recovered/Not Resolved]
